FAERS Safety Report 11429353 (Version 1)
Quarter: 2015Q3

REPORT INFORMATION
  Report Type: Spontaneous
  Country: US (occurrence: US)
  Receive Date: 20150828
  Receipt Date: 20150828
  Transmission Date: 20151125
  Serious: Yes (Other)
  Sender: FDA-Public Use
  Company Number: US-ROCHE-1209680

PATIENT
  Sex: Male

DRUGS (1)
  1. PEGASYS [Suspect]
     Active Substance: PEGINTERFERON ALFA-2A
     Indication: HEPATITIS C
     Route: 058

REACTIONS (6)
  - Rash [Unknown]
  - Mood altered [Unknown]
  - Decreased appetite [Unknown]
  - Suicidal ideation [Unknown]
  - Vomiting [Unknown]
  - Diarrhoea [Unknown]
